FAERS Safety Report 4842141-0 (Version None)
Quarter: 2005Q4

REPORT INFORMATION
  Report Type: 
  Country: None (occurrence: None)
  Receive Date: 20051130
  Receipt Date: 20050929
  Transmission Date: 20060501
  Serious: Yes (Hospitalization, Disabling)
  Sender: FDA-Public Use
  Company Number: US-MERCK-0510USA00058

PATIENT
  Age: 57 Year
  Sex: Female
  Weight: 101 kg

DRUGS (4)
  1. VIOXX [Suspect]
     Indication: OSTEOARTHRITIS
     Route: 048
     Dates: start: 20030101
  2. VIOXX [Suspect]
     Route: 048
     Dates: start: 20030101
  3. VIOXX [Suspect]
     Indication: PAIN
     Route: 048
     Dates: start: 20030101
  4. VIOXX [Suspect]
     Route: 048
     Dates: start: 20030101

REACTIONS (3)
  - HEADACHE [None]
  - ISCHAEMIC STROKE [None]
  - PRESCRIBED OVERDOSE [None]
